FAERS Safety Report 20892951 (Version 3)
Quarter: 2022Q3

REPORT INFORMATION
  Report Type: Spontaneous
  Country: US (occurrence: US)
  Receive Date: 20220531
  Receipt Date: 20220729
  Transmission Date: 20221027
  Serious: Yes (Other)
  Sender: FDA-Public Use
  Company Number: US-BIOVITRUM-2022US07187

PATIENT
  Sex: Male
  Weight: 8 kg

DRUGS (21)
  1. SYNAGIS [Suspect]
     Active Substance: PALIVIZUMAB
     Indication: Low birth weight baby
  2. ACETAMINOPHEN [Concomitant]
     Active Substance: ACETAMINOPHEN
  3. PHENOBARBITAL [Concomitant]
     Active Substance: PHENOBARBITAL
  4. POLYETHYLENE GLYCOL [Concomitant]
     Active Substance: POLYETHYLENE GLYCOL
  5. ALBUTEROL SULFATE [Concomitant]
     Active Substance: ALBUTEROL SULFATE
  6. VITAMINS [Concomitant]
     Active Substance: VITAMINS
  7. ALDACTONE [Concomitant]
     Active Substance: SPIRONOLACTONE
  8. KEPPRA [Concomitant]
     Active Substance: LEVETIRACETAM
  9. FAMOTIDINE [Concomitant]
     Active Substance: FAMOTIDINE
  10. KLOR-CON [Concomitant]
     Active Substance: POTASSIUM CHLORIDE
  11. BOSENTAN [Concomitant]
     Active Substance: BOSENTAN
  12. ENOXAPARIN SODIUM [Concomitant]
     Active Substance: ENOXAPARIN SODIUM
  13. SILDENAFIL CITRATE [Concomitant]
     Active Substance: SILDENAFIL CITRATE
  14. LASIX [Concomitant]
     Active Substance: FUROSEMIDE
  15. HYDROCHLOROTHIAZIDE [Concomitant]
     Active Substance: HYDROCHLOROTHIAZIDE
  16. PROTONIX [Concomitant]
     Active Substance: PANTOPRAZOLE SODIUM
  17. MELATONIN [Concomitant]
     Active Substance: MELATONIN
  18. UPTRAVI [Concomitant]
     Active Substance: SELEXIPAG
  19. ASPIRIN [Concomitant]
     Active Substance: ASPIRIN
  20. REGLAN [Concomitant]
     Active Substance: METOCLOPRAMIDE HYDROCHLORIDE
  21. PANTOPRAZOLE SODIUM [Concomitant]
     Active Substance: PANTOPRAZOLE SODIUM

REACTIONS (2)
  - Pulmonary congestion [Unknown]
  - Nasal congestion [Unknown]
